FAERS Safety Report 8326029-9 (Version None)
Quarter: 2012Q2

REPORT INFORMATION
  Report Type: 
  Country: None (occurrence: None)
  Receive Date: 20120501
  Receipt Date: 20110505
  Transmission Date: 20120825
  Serious: No
  Sender: FDA-Public Use
  Company Number: US-SANOFI-AVENTIS-2011SA029233

PATIENT
  Age: 29 Year
  Sex: Female

DRUGS (1)
  1. APIDRA [Suspect]
     Route: 058
     Dates: start: 20110504

REACTIONS (2)
  - RASH MACULAR [None]
  - PARAESTHESIA [None]
